FAERS Safety Report 8290674-X (Version None)
Quarter: 2012Q2

REPORT INFORMATION
  Report Type: 
  Country: None (occurrence: None)
  Receive Date: 20120412
  Receipt Date: 20120412
  Transmission Date: 20120825
  Serious: Yes (Life-Threatening)
  Sender: FDA-Public Use
  Company Number: None

PATIENT
  Sex: Female
  Weight: 74.8435 kg

DRUGS (1)
  1. LEVOTHYROXINE SODIUM [Suspect]
     Indication: HYPERTHYROIDISM
     Dosage: 150 MCG DAILY PO TAKEN UNTIL REACTION
     Route: 048

REACTIONS (3)
  - PHARYNGEAL OEDEMA [None]
  - URTICARIA [None]
  - VERTIGO [None]
